FAERS Safety Report 5441205-0 (Version None)
Quarter: 2007Q3

REPORT INFORMATION
  Report Type: 
  Country: None (occurrence: None)
  Receive Date: 20070901
  Receipt Date: 20070822
  Transmission Date: 20080115
  Serious: Yes (Other)
  Sender: FDA-Public Use
  Company Number: BR-PFIZER INC-2007070611

PATIENT
  Sex: Male

DRUGS (3)
  1. CARDURAN XL [Suspect]
     Indication: PROSTATIC DISORDER
     Route: 048
  2. TAMSULOSIN HCL [Suspect]
  3. TENORETIC 100 [Concomitant]

REACTIONS (7)
  - BLOOD URINE PRESENT [None]
  - DYSURIA [None]
  - FEELING ABNORMAL [None]
  - HAEMATOCHEZIA [None]
  - HEART RATE DECREASED [None]
  - PROSTATIC DISORDER [None]
  - SENSORY DISTURBANCE [None]
